FAERS Safety Report 23758880 (Version 1)
Quarter: 2024Q2

REPORT INFORMATION
  Report Type: Spontaneous
  Country: US (occurrence: None)
  Receive Date: 20240418
  Receipt Date: 20240418
  Transmission Date: 20240716
  Serious: No
  Sender: FDA-Public Use
  Company Number: US-ROCHE-3342604

PATIENT
  Sex: Male

DRUGS (3)
  1. AVASTIN [Suspect]
     Active Substance: BEVACIZUMAB
     Indication: Neovascular age-related macular degeneration
     Dosage: RECEIVES IN LEFT EYE, ALTERNATED WITH EYLEA EVERY OTHER INJECTION ON A 5 WEEK BASIS ;ONGOING: NO
     Route: 050
     Dates: start: 2000, end: 2022
  2. AVASTIN [Suspect]
     Active Substance: BEVACIZUMAB
     Dosage: RECEIVES IN LEFT EYE ;ONGOING: YES
     Route: 050
     Dates: start: 2022
  3. EYLEA [Concomitant]
     Active Substance: AFLIBERCEPT
     Indication: Neovascular age-related macular degeneration
     Dosage: ALTERNATED WITH AVASTIN EVERY OTHER INJECTION ON A 5 WEEK BASIS
     Route: 050
     Dates: start: 2000, end: 2022

REACTIONS (2)
  - Cataract [Not Recovered/Not Resolved]
  - Off label use [Unknown]

NARRATIVE: CASE EVENT DATE: 20230101
